FAERS Safety Report 8534870-2 (Version None)
Quarter: 2012Q3

REPORT INFORMATION
  Report Type: 
  Country: None (occurrence: None)
  Receive Date: 20120724
  Receipt Date: 20120720
  Transmission Date: 20120928
  Serious: Yes (Other)
  Sender: FDA-Public Use
  Company Number: CHPA2012US015627

PATIENT
  Age: 65 Year
  Sex: Female

DRUGS (2)
  1. ESTROGEN NOS [Concomitant]
     Indication: HOT FLUSH
  2. PREVACID 24 HR [Suspect]
     Indication: GASTROOESOPHAGEAL REFLUX DISEASE
     Dosage: 15 MG, QD
     Route: 048
     Dates: start: 20110101, end: 20120301

REACTIONS (3)
  - INCORRECT DRUG ADMINISTRATION DURATION [None]
  - HEPATIC CIRRHOSIS [None]
  - OFF LABEL USE [None]
